FAERS Safety Report 12857075 (Version 1)
Quarter: 2016Q4

REPORT INFORMATION
  Report Type: Spontaneous
  Country: CN (occurrence: CN)
  Receive Date: 20161018
  Receipt Date: 20161018
  Transmission Date: 20170207
  Serious: Yes (Life-Threatening, Hospitalization)
  Sender: FDA-Public Use
  Company Number: CN-MYLANLABS-2016M1044402

PATIENT

DRUGS (1)
  1. ENALAPRIL [Suspect]
     Active Substance: ENALAPRIL
     Indication: PRODUCT USED FOR UNKNOWN INDICATION
     Dosage: 700 TABLETS OF 10MG ENALAPRIL
     Route: 048

REACTIONS (15)
  - Vomiting [Recovered/Resolved]
  - Asthenia [Recovered/Resolved]
  - Suicide attempt [Recovered/Resolved]
  - Dyspnoea [Recovered/Resolved]
  - Toxicity to various agents [Recovered/Resolved]
  - Hypotension [Recovered/Resolved]
  - Respiratory failure [Recovered/Resolved]
  - Oedema [Recovered/Resolved]
  - Pleural effusion [Recovered/Resolved]
  - Metabolic acidosis [Recovered/Resolved]
  - Renal impairment [Recovered/Resolved]
  - Abdominal discomfort [Recovered/Resolved]
  - Dizziness [Recovered/Resolved]
  - Intentional overdose [Recovered/Resolved]
  - Lethargy [Recovered/Resolved]
